FAERS Safety Report 16368776 (Version 1)
Quarter: 2019Q2

REPORT INFORMATION
  Report Type: Spontaneous
  Country: GB (occurrence: GB)
  Receive Date: 20190529
  Receipt Date: 20190529
  Transmission Date: 20190711
  Serious: Yes (Other)
  Sender: FDA-Public Use
  Company Number: PHHY2019GB123798

PATIENT
  Age: 57 Year
  Sex: Female

DRUGS (3)
  1. IRON [Concomitant]
     Active Substance: IRON
     Indication: ANAEMIA
     Dosage: 2 DF, UNK
     Route: 065
  2. ELTROMBOPAG [Suspect]
     Active Substance: ELTROMBOPAG
     Dosage: 75 MG, UNK
     Route: 065
  3. ELTROMBOPAG [Suspect]
     Active Substance: ELTROMBOPAG
     Indication: IMMUNE THROMBOCYTOPENIC PURPURA
     Dosage: 50 MG, UNK (FOR 3 DAYS)
     Route: 065

REACTIONS (11)
  - Diarrhoea [Unknown]
  - Contusion [Unknown]
  - Clostridium difficile infection [Unknown]
  - Decreased appetite [Recovered/Resolved]
  - Intra-abdominal haemorrhage [Unknown]
  - Platelet count decreased [Recovered/Resolved]
  - Hypotension [Unknown]
  - Epistaxis [Unknown]
  - Malaise [Unknown]
  - Depressed level of consciousness [Unknown]
  - Insomnia [Unknown]
